FAERS Safety Report 6496461-7 (Version None)
Quarter: 2009Q4

REPORT INFORMATION
  Report Type: 
  Country: None (occurrence: None)
  Receive Date: 20091214
  Receipt Date: 20091012
  Transmission Date: 20100525
  Serious: Yes (Life-Threatening, Hospitalization, Other)
  Sender: FDA-Public Use
  Company Number: US-RB-021552-09

PATIENT
  Age: 43 Year
  Sex: Male

DRUGS (3)
  1. SUBOXONE [Suspect]
     Indication: PAIN
     Dosage: CUTTING PILL INTO QUARTERS
     Route: 060
     Dates: start: 20091001, end: 20091003
  2. CLONIDINE [Concomitant]
     Indication: HYPERTENSION
     Route: 048
     Dates: start: 20090801
  3. AZOR [Concomitant]
     Indication: HYPERTENSION
     Dosage: UNKNOWN UNIT DOSE
     Route: 048
     Dates: start: 20090801

REACTIONS (11)
  - ANXIETY [None]
  - BRADYPHRENIA [None]
  - CEREBROVASCULAR ACCIDENT [None]
  - DYSARTHRIA [None]
  - HYPERTENSION [None]
  - HYPOKINESIA [None]
  - MUSCULAR WEAKNESS [None]
  - NAUSEA [None]
  - TREMOR [None]
  - VISION BLURRED [None]
  - VOMITING [None]
